FAERS Safety Report 4605930-3 (Version None)
Quarter: 2005Q2

REPORT INFORMATION
  Report Type: 
  Country: None (occurrence: None)
  Receive Date: 20050303
  Receipt Date: 20041123
  Transmission Date: 20051028
  Serious: No
  Sender: FDA-Public Use
  Company Number: 200421063BWH

PATIENT
  Age: 55 Year
  Sex: Male
  Weight: 103.4201 kg

DRUGS (8)
  1. LEVITRA [Suspect]
     Indication: ERECTILE DYSFUNCTION
     Dosage: 10 MG, TOTAL DAILY, ORAL;  20 MG, TOTAL DAILY, ORAL
     Route: 048
     Dates: start: 20041109
  2. LEVITRA [Suspect]
     Indication: ERECTILE DYSFUNCTION
     Dosage: 10 MG, TOTAL DAILY, ORAL;  20 MG, TOTAL DAILY, ORAL
     Route: 048
     Dates: start: 20041123
  3. VIAGRA [Concomitant]
  4. CIALIS [Concomitant]
  5. DIOVAN [Concomitant]
  6. NORVASC [Concomitant]
  7. NAPROXEN [Concomitant]
  8. PROSTATE ESSENTIALS [Concomitant]

REACTIONS (2)
  - ERECTILE DYSFUNCTION [None]
  - NAUSEA [None]
